FAERS Safety Report 8769824 (Version 2)
Quarter: 2013Q1

REPORT INFORMATION
  Report Type: Spontaneous
  Country: US (occurrence: US)
  Receive Date: 20120906
  Receipt Date: 20130215
  Transmission Date: 20140127
  Serious: Yes (Hospitalization, Other)
  Sender: FDA-Public Use
  Company Number: US-009507513-2012SP013398

PATIENT
  Sex: Male

DRUGS (5)
  1. RIBAVIRIN [Suspect]
     Indication: CHRONIC HEPATITIS C
     Dosage: UNKNOWN
     Dates: start: 20090306, end: 20090605
  2. RIBAVIRIN [Suspect]
     Dosage: UNK
     Dates: start: 20120309
  3. PEGASYS [Suspect]
     Indication: CHRONIC HEPATITIS C
     Dosage: UNK UNK, UNKNOWN
     Route: 065
     Dates: start: 20090306, end: 20090605
  4. PEGASYS [Suspect]
     Dosage: UNK
     Dates: start: 20120309
  5. VICTRELIS [Suspect]
     Indication: CHRONIC HEPATITIS C
     Dosage: UNK
     Dates: start: 20120406, end: 20121214

REACTIONS (26)
  - Glaucoma [Unknown]
  - Alcoholism [Unknown]
  - Anaemia [Unknown]
  - Mental disorder [Unknown]
  - White blood cell count decreased [Unknown]
  - Fatigue [Unknown]
  - Anxiety [Unknown]
  - Irritability [Unknown]
  - Insomnia [Unknown]
  - Dry mouth [Unknown]
  - Dysgeusia [Unknown]
  - Diarrhoea [Unknown]
  - Constipation [Unknown]
  - Dehydration [Unknown]
  - Cough [Unknown]
  - Dry skin [Unknown]
  - Rash [Unknown]
  - Alopecia [Unknown]
  - Injection site reaction [Unknown]
  - Balance disorder [Unknown]
  - Dizziness [Unknown]
  - Injection site discolouration [Unknown]
  - Nocturia [Unknown]
  - Anaemia [Unknown]
  - Anaemia [Unknown]
  - Haemoglobin decreased [Unknown]
